FAERS Safety Report 9235198 (Version 1)
Quarter: 2013Q2

REPORT INFORMATION
  Report Type: Spontaneous
  Country: US (occurrence: US)
  Receive Date: 20130417
  Receipt Date: 20130417
  Transmission Date: 20140414
  Serious: Yes (Hospitalization, Other)
  Sender: FDA-Public Use
  Company Number: US-AMGEN-USASP2013026250

PATIENT
  Age: 68 Year
  Sex: Male
  Weight: 129.25 kg

DRUGS (18)
  1. PROCRIT [Suspect]
     Indication: HAEMOGLOBIN DECREASED
     Dosage: 10000 UNIT, AS NECESSARY
     Route: 058
     Dates: start: 2011
  2. CARVEDILOL [Concomitant]
     Indication: BLOOD PRESSURE
     Dosage: 25 MG/ 325 MG  BID
     Route: 048
  3. RAMIPRIL [Concomitant]
     Indication: HYPERTENSION
     Dosage: 10 MG, BID
     Route: 048
  4. ATACAND [Concomitant]
     Indication: BLOOD PRESSURE
     Dosage: 32 MG, UNK
  5. HYDRALAZINE [Concomitant]
     Indication: BLOOD PRESSURE
     Dosage: 50 MG, QD
  6. POTASSIUM [Concomitant]
     Indication: SUPPLEMENTATION THERAPY
     Dosage: 10 MEQ, QD
     Route: 048
  7. LOVAZA [Concomitant]
     Indication: BLOOD TRIGLYCERIDES
     Dosage: 1 MG, QD/ 1 GM
     Route: 050
     Dates: start: 2010
  8. FUROSEMIDE [Concomitant]
     Indication: DIURETIC THERAPY
     Dosage: 20 MG, BID
     Route: 048
     Dates: start: 2009
  9. FERREX [Concomitant]
     Indication: SUPPLEMENTATION THERAPY
     Dosage: 150 MG, QD
     Route: 048
     Dates: start: 2011
  10. CRESTOR [Concomitant]
     Indication: BLOOD CHOLESTEROL
     Dosage: 20 MG, QD
     Route: 048
     Dates: start: 2005
  11. ALLOPURINOL [Concomitant]
     Indication: BLOOD URIC ACID
     Dosage: 150 MG, QD
     Route: 048
     Dates: start: 2011
  12. CALCITROL                          /00508501/ [Concomitant]
     Indication: SUPPLEMENTATION THERAPY
     Dosage: 0.25 MUG, QD AND TWICE A DAY
     Route: 048
  13. GLIMEPIRIDE [Concomitant]
     Indication: DIABETES MELLITUS
     Dosage: 4 MG, QD
     Route: 048
     Dates: start: 2008
  14. JANUVIA [Concomitant]
     Indication: DIABETES MELLITUS
     Dosage: UNK
     Dates: end: 201304
  15. TERAZOSIN [Concomitant]
     Indication: PROSTATIC DISORDER
     Dosage: 10 MG, QD
     Route: 048
     Dates: start: 2009
  16. OMEPRAZOLE [Concomitant]
     Indication: GASTROOESOPHAGEAL REFLUX DISEASE
     Dosage: 20 MG, QD
     Route: 048
     Dates: start: 2009
  17. RENAL [Concomitant]
     Dosage: UNK TABLET
     Route: 048
     Dates: start: 2012
  18. AMLODIPINE [Concomitant]
     Indication: BLOOD PRESSURE
     Dosage: 10 MG, QD
     Route: 048
     Dates: start: 2012

REACTIONS (6)
  - Vertigo [Recovered/Resolved]
  - Swollen tongue [Not Recovered/Not Resolved]
  - Haemoglobin decreased [Unknown]
  - Hypertension [Unknown]
  - Dizziness [Recovered/Resolved]
  - Vomiting [Not Recovered/Not Resolved]
